FAERS Safety Report 13877514 (Version 1)
Quarter: 2017Q3

REPORT INFORMATION
  Report Type: Spontaneous
  Country: US (occurrence: US)
  Receive Date: 20170817
  Receipt Date: 20170817
  Transmission Date: 20171127
  Serious: Yes (Other)
  Sender: FDA-Public Use
  Company Number: US-LPDUSPRD-20171137

PATIENT
  Age: 49 Year
  Sex: Female

DRUGS (1)
  1. TRANEXAMIC ACID INJECTION(0517-0960-01) [Suspect]
     Active Substance: TRANEXAMIC ACID
     Dosage: 650MG
     Route: 065

REACTIONS (1)
  - Vasculitis [Unknown]
